FAERS Safety Report 21727170 (Version 2)
Quarter: 2022Q4

REPORT INFORMATION
  Report Type: Report from Study
  Country: US (occurrence: US)
  Receive Date: 20221214
  Receipt Date: 20221215
  Transmission Date: 20230113
  Serious: Yes (Hospitalization)
  Sender: FDA-Public Use
  Company Number: US-BIOVITRUM-2022US14668

PATIENT
  Age: 0 Year
  Sex: Female

DRUGS (1)
  1. SYNAGIS [Suspect]
     Active Substance: PALIVIZUMAB
     Indication: Antiviral prophylaxis
     Dates: start: 20221126, end: 20221129

REACTIONS (3)
  - Dysphagia [Unknown]
  - Dyspnoea [Unknown]
  - Scar [Unknown]

NARRATIVE: CASE EVENT DATE: 20221126
